FAERS Safety Report 11415107 (Version 2)
Quarter: 2015Q4

REPORT INFORMATION
  Report Type: Report from Study
  Country: US (occurrence: US)
  Receive Date: 20150825
  Receipt Date: 20151106
  Transmission Date: 20160304
  Serious: No
  Sender: FDA-Public Use
  Company Number: US-AMGEN-USASL2015085089

PATIENT
  Age: 32 Year
  Sex: Female

DRUGS (1)
  1. ENBREL [Suspect]
     Active Substance: ETANERCEPT
     Indication: PSORIASIS
     Dosage: UNK
     Route: 065
     Dates: start: 2005

REACTIONS (5)
  - Photosensitivity reaction [Unknown]
  - Psoriasis [Recovering/Resolving]
  - Injection site pain [Unknown]
  - Injection site erythema [Unknown]
  - Contusion [Unknown]

NARRATIVE: CASE EVENT DATE: 2005
